FAERS Safety Report 5350539-X (Version None)
Quarter: 2007Q2

REPORT INFORMATION
  Report Type: 
  Country: None (occurrence: None)
  Receive Date: 20070608
  Receipt Date: 20070529
  Transmission Date: 20071010
  Serious: Yes (Hospitalization)
  Sender: FDA-Public Use
  Company Number: JP-NOVOPROD-263204

PATIENT
  Age: 65 Year
  Sex: Male
  Weight: 63 kg

DRUGS (2)
  1. NOVOLIN R [Suspect]
     Indication: DIABETES MELLITUS NON-INSULIN-DEPENDENT
     Dosage: 14 IU, QD
     Route: 058
     Dates: start: 20041001, end: 20050811
  2. ORAL ANTIDIABETICS [Concomitant]
     Indication: DIABETES MELLITUS NON-INSULIN-DEPENDENT
     Dates: start: 20010101

REACTIONS (2)
  - ANTI-INSULIN ANTIBODY [None]
  - HYPOGLYCAEMIA [None]
